FAERS Safety Report 4998066-3 (Version None)
Quarter: 2006Q2

REPORT INFORMATION
  Report Type: 
  Country: None (occurrence: None)
  Receive Date: 20060508
  Receipt Date: 20060428
  Transmission Date: 20061013
  Serious: Yes (Hospitalization)
  Sender: FDA-Public Use
  Company Number: CIP06000957

PATIENT
  Age: 84 Year
  Sex: Female

DRUGS (5)
  1. ACTONEL [Suspect]
     Dosage: 35 MG ONCE WEEKLY ORAL
     Route: 048
     Dates: start: 20040101
  2. OMPEPRAZOLE (OMEPRAZOLE) [Concomitant]
  3. QUINAPRIL HCL [Concomitant]
  4. ATENOLOL [Concomitant]
  5. LIPITOR [Concomitant]

REACTIONS (5)
  - ASPIRATION [None]
  - CHOKING [None]
  - COUGH [None]
  - MALAISE [None]
  - MYOCARDIAL INFARCTION [None]
